FAERS Safety Report 6052945-7 (Version None)
Quarter: 2009Q1

REPORT INFORMATION
  Report Type: 
  Country: None (occurrence: None)
  Receive Date: 20090122
  Receipt Date: 20090115
  Transmission Date: 20090719
  Serious: Yes (Hospitalization)
  Sender: FDA-Public Use
  Company Number: 112402

PATIENT
  Age: 70 Year
  Sex: Female
  Weight: 72.5755 kg

DRUGS (3)
  1. DIPHEDRYL TABLETS / PERRIGO COMPANY [Suspect]
     Indication: HYPERSENSITIVITY
     Dosage: 2-4 TABLETS / QD PRN / ORAL
     Route: 048
     Dates: start: 20080315, end: 20090107
  2. DIPHEDRYL TABLETS / PERRIGO COMPANY [Suspect]
     Indication: HYPERSENSITIVITY
     Dosage: 2-4 TABLETS / QD / ORAL
     Route: 048
     Dates: start: 20090108
  3. WARFARIN SODIUM [Concomitant]

REACTIONS (2)
  - INTERNATIONAL NORMALISED RATIO DECREASED [None]
  - PULMONARY THROMBOSIS [None]
